FAERS Safety Report 22198084 (Version 1)
Quarter: 2023Q2

REPORT INFORMATION
  Report Type: Spontaneous
  Country: CA (occurrence: CA)
  Receive Date: 20230411
  Receipt Date: 20230411
  Transmission Date: 20230721
  Serious: Yes (Other)
  Sender: FDA-Public Use
  Company Number: CA-PFIZER INC-202300148288

PATIENT
  Age: 77 Year
  Sex: Male

DRUGS (2)
  1. METHOTREXATE SODIUM [Suspect]
     Active Substance: METHOTREXATE SODIUM
     Dosage: 15 MG, WEEKLY, 6 TABLETS ONCE A WEEK FOR THE FIRST TWO WEEKS THEN 4 TABLETS ONCE A WEEK THEREAFTER
     Route: 048
  2. METHOTREXATE SODIUM [Suspect]
     Active Substance: METHOTREXATE SODIUM
     Dosage: 10 MG, WEEKLY
     Route: 048

REACTIONS (8)
  - Knee arthroplasty [Unknown]
  - Gastric ulcer [Unknown]
  - Cataract [Unknown]
  - Appendicitis [Unknown]
  - Tibia fracture [Unknown]
  - Ankle fracture [Unknown]
  - Vitamin B12 deficiency [Unknown]
  - Diarrhoea [Unknown]
